FAERS Safety Report 4283260-X (Version None)
Quarter: 2004Q1

REPORT INFORMATION
  Report Type: 
  Country: None (occurrence: None)
  Receive Date: 20040129
  Receipt Date: 20040119
  Transmission Date: 20041129
  Serious: Yes (Death)
  Sender: FDA-Public Use
  Company Number: 2004AP00192

PATIENT
  Age: 60 Year
  Sex: Male

DRUGS (21)
  1. IRESSA [Suspect]
     Indication: SQUAMOUS CELL CARCINOMA
     Dosage: 250 MG DAILY PO
     Route: 048
     Dates: start: 20031212, end: 20031217
  2. IRESSA [Suspect]
     Indication: SQUAMOUS CELL CARCINOMA
     Dosage: 250 MG DAILY PO
     Route: 048
     Dates: start: 20031222, end: 20040110
  3. MEDICON [Concomitant]
  4. CLEANAL [Concomitant]
  5. MUCOSTA [Concomitant]
  6. SULPERAZON [Concomitant]
  7. SALIPARA CODEINE [Concomitant]
  8. SENEGA [Concomitant]
  9. ADONA [Concomitant]
  10. TRANSAMIN [Concomitant]
  11. MEROPEN [Concomitant]
  12. LOXONIN [Concomitant]
  13. SOSEGON [Concomitant]
  14. ATARAX [Concomitant]
  15. ADONA [Concomitant]
  16. TRANSAMIN [Concomitant]
  17. PRIMPERAN TAB [Concomitant]
  18. ASPIRIN [Concomitant]
  19. LIPITOR [Concomitant]
  20. SIGMART [Concomitant]
  21. SELBEX [Concomitant]

REACTIONS (7)
  - INTERSTITIAL LUNG DISEASE [None]
  - LYMPHANGIOSIS CARCINOMATOSA [None]
  - MALAISE [None]
  - NAUSEA [None]
  - PNEUMOCYSTIS CARINII PNEUMONIA [None]
  - PNEUMONIA VIRAL [None]
  - RESPIRATORY FAILURE [None]
